FAERS Safety Report 5740489-9 (Version None)
Quarter: 2008Q2

REPORT INFORMATION
  Report Type: 
  Country: None (occurrence: None)
  Receive Date: 20080516
  Receipt Date: 20080505
  Transmission Date: 20081010
  Serious: Yes (Other)
  Sender: FDA-Public Use
  Company Number: IT-ROCHE-564666

PATIENT

DRUGS (2)
  1. INTERFERON ALFA-2A [Suspect]
     Indication: METASTATIC RENAL CELL CARCINOMA
     Dosage: STARTED 7 DAYS AFTER SORAFENIB
     Route: 058
  2. SORAFENIB [Suspect]
     Indication: METASTATIC RENAL CELL CARCINOMA
     Route: 048

REACTIONS (8)
  - ANOREXIA [None]
  - DIARRHOEA [None]
  - DISEASE PROGRESSION [None]
  - HYPERAMYLASAEMIA [None]
  - HYPERLIPASAEMIA [None]
  - HYPOPHOSPHATAEMIA [None]
  - PALMAR-PLANTAR ERYTHRODYSAESTHESIA SYNDROME [None]
  - STOMATITIS [None]
